FAERS Safety Report 6167131-X (Version None)
Quarter: 2009Q2

REPORT INFORMATION
  Report Type: 
  Country: None (occurrence: None)
  Receive Date: 20090424
  Receipt Date: 20090410
  Transmission Date: 20091009
  Serious: Yes (Other)
  Sender: FDA-Public Use
  Company Number: FR-CELGENEUS-056-50794-09041198

PATIENT
  Sex: Male
  Weight: 44 kg

DRUGS (4)
  1. VIDAZA [Suspect]
     Route: 065
     Dates: start: 20090316, end: 20090322
  2. TIENAM [Concomitant]
     Indication: DRUG USE FOR UNKNOWN INDICATION
     Route: 065
  3. VANCOMYCINE [Concomitant]
     Indication: DRUG USE FOR UNKNOWN INDICATION
     Route: 065
  4. KEFLEX [Concomitant]
     Indication: DRUG USE FOR UNKNOWN INDICATION
     Route: 065

REACTIONS (4)
  - CAPILLARY LEAK SYNDROME [None]
  - CONSTIPATION [None]
  - PAIN [None]
  - PYREXIA [None]
